FAERS Safety Report 15639541 (Version 1)
Quarter: 2018Q4

REPORT INFORMATION
  Report Type: Report from Study
  Country: None (occurrence: DE)
  Receive Date: 20181120
  Receipt Date: 20181120
  Transmission Date: 20190205
  Serious: Yes (Death)
  Sender: FDA-Public Use
  Company Number: DE-ABBVIE-18S-062-2562741-00

PATIENT
  Sex: Male

DRUGS (1)
  1. DUODOPA [Suspect]
     Active Substance: CARBIDOPA\LEVODOPA
     Indication: PARKINSON^S DISEASE
     Dosage: MD:0 ML; CRD: 5.5 ML/H; CRN: 5.5 ML/H; ED: 2.0 ML
     Route: 050
     Dates: start: 20090914

REACTIONS (1)
  - General physical health deterioration [Fatal]
